FAERS Safety Report 7705559-4 (Version None)
Quarter: 2011Q3

REPORT INFORMATION
  Report Type: 
  Country: None (occurrence: None)
  Receive Date: 20110818
  Receipt Date: 20110804
  Transmission Date: 20111222
  Serious: Yes (Other)
  Sender: FDA-Public Use
  Company Number: 2011P1007936

PATIENT
  Sex: Female

DRUGS (2)
  1. FLUOROURACIL [Suspect]
     Indication: PRECANCEROUS SKIN LESION
     Dosage: 1 APPLICATION; BID; TOP
     Route: 061
     Dates: start: 20110321, end: 20110404
  2. ^AVISTA^ (LIKELY EVISTA) [Concomitant]

REACTIONS (2)
  - PRECANCEROUS SKIN LESION [None]
  - APPLICATION SITE ERYTHEMA [None]
